FAERS Safety Report 24571580 (Version 1)
Quarter: 2024Q4

REPORT INFORMATION
  Report Type: Spontaneous
  Country: US (occurrence: None)
  Receive Date: 20241031
  Receipt Date: 20241031
  Transmission Date: 20250115
  Serious: No
  Sender: Public
  Company Number: None

PATIENT
  Age: 64 Year
  Sex: Female

DRUGS (1)
  1. BETADINE [Suspect]
     Active Substance: POVIDONE-IODINE

REACTIONS (2)
  - Eye irritation [None]
  - Accidental exposure to product [None]

NARRATIVE: CASE EVENT DATE: 20241001
